FAERS Safety Report 15378982 (Version 4)
Quarter: 2020Q2

REPORT INFORMATION
  Report Type: Spontaneous
  Country: FR (occurrence: FR)
  Receive Date: 20180913
  Receipt Date: 20200422
  Transmission Date: 20200713
  Serious: Yes (Hospitalization, Other)
  Sender: FDA-Public Use
  Company Number: FR-SA-2018SA250681

PATIENT
  Age: 23 Year
  Sex: Male
  Weight: 49 kg

DRUGS (18)
  1. LOVENOX [Suspect]
     Active Substance: ENOXAPARIN SODIUM
     Indication: PRODUCT USED FOR UNKNOWN INDICATION
     Dosage: 1 DF, QD
     Route: 058
     Dates: start: 20081224
  2. TRANXENE [Suspect]
     Active Substance: CLORAZEPATE DIPOTASSIUM
     Indication: ANXIETY
     Dosage: 1 DF, QD
     Route: 042
     Dates: start: 20081222, end: 20090123
  3. ALANINE [Suspect]
     Active Substance: ALANINE
     Indication: PARENTERAL NUTRITION
     Dosage: 4000 ML, QD
     Route: 041
     Dates: start: 20081228, end: 20090207
  4. SPECIAFOLDINE [Suspect]
     Active Substance: FOLIC ACID
     Indication: PRODUCT USED FOR UNKNOWN INDICATION
     Dosage: 3 DF, QD
     Route: 048
     Dates: start: 20081223
  5. FLUCONAZOLE. [Suspect]
     Active Substance: FLUCONAZOLE
     Dosage: 200 MG, QD
     Route: 048
     Dates: start: 20090119, end: 20090130
  6. VANCOMYCIN [Suspect]
     Active Substance: VANCOMYCIN
     Dosage: 2 G, QD
     Route: 042
     Dates: start: 20081222, end: 20090112
  7. STRUCTOKABIVEN [Suspect]
     Active Substance: AMINO ACIDS\DEXTROSE\ELECTROLYTES NOS
     Indication: MALNUTRITION
     Dosage: 4000 ML, QD
     Route: 041
     Dates: start: 20081228, end: 20090207
  8. VANCOMYCIN [Suspect]
     Active Substance: VANCOMYCIN
     Indication: ABSCESS
     Dosage: 32 G
     Route: 042
     Dates: start: 20081220, end: 20090112
  9. FLUCONAZOLE. [Suspect]
     Active Substance: FLUCONAZOLE
     Indication: RASH
     Dosage: 100 MG, QD
     Route: 048
     Dates: start: 20090106, end: 20090118
  10. ECONAZOLE NITRATE. [Suspect]
     Active Substance: ECONAZOLE NITRATE
     Indication: RASH
     Dosage: 2 DF
     Route: 061
     Dates: start: 20090114
  11. METHYLPREDNISOLONE SODIUM SUCCINATE. [Suspect]
     Active Substance: METHYLPREDNISOLONE SODIUM SUCCINATE
     Indication: ABSCESS
     Dosage: 100 MG
     Route: 042
     Dates: start: 20090120
  12. CALCIUM CARBONATE. [Suspect]
     Active Substance: CALCIUM CARBONATE
     Indication: PRODUCT USED FOR UNKNOWN INDICATION
     Dosage: 1 DF, QD
     Route: 048
     Dates: start: 20081227
  13. CILASTATIN SODIUM/IMIPENEM [Suspect]
     Active Substance: CILASTATIN SODIUM\IMIPENEM
     Indication: ABSCESS
     Dosage: UNK
     Route: 042
     Dates: start: 20081222, end: 20090112
  14. DESLORATADINE. [Suspect]
     Active Substance: DESLORATADINE
     Indication: RASH
     Dosage: 1 DF, QD
     Route: 048
     Dates: start: 20090107
  15. METHYLPREDNISOLONE SODIUM SUCCINATE. [Suspect]
     Active Substance: METHYLPREDNISOLONE SODIUM SUCCINATE
     Indication: CROHN^S DISEASE
     Dosage: 60 MG
     Route: 048
     Dates: start: 20080811
  16. ALANINE [Suspect]
     Active Substance: ALANINE
     Indication: MALNUTRITION
  17. EBASTINE [Suspect]
     Active Substance: EBASTINE
     Indication: RASH
     Dosage: UNK
     Route: 048
     Dates: start: 20090107
  18. REMICADE [Suspect]
     Active Substance: INFLIXIMAB
     Indication: CROHN^S DISEASE
     Dosage: 100 MG
     Route: 042
     Dates: start: 20090120

REACTIONS (1)
  - Hepatitis [Recovering/Resolving]

NARRATIVE: CASE EVENT DATE: 20090106
